FAERS Safety Report 5096813-6 (Version None)
Quarter: 2006Q3

REPORT INFORMATION
  Report Type: 
  Country: None (occurrence: None)
  Receive Date: 20060831
  Receipt Date: 20060818
  Transmission Date: 20061208
  Serious: Yes (Hospitalization)
  Sender: FDA-Public Use
  Company Number: 2006092921

PATIENT
  Age: 72 Year
  Sex: Female
  Weight: 65 kg

DRUGS (6)
  1. LYRICA [Suspect]
     Indication: OSTEOARTHRITIS
     Dosage: 75 MG (75 MG, 1 IN 1 D), ORAL
     Route: 048
     Dates: start: 20060721, end: 20060721
  2. LIVIAL [Concomitant]
  3. EMCONCOR (BISOPROLOL) [Concomitant]
  4. DIOVAN HCT [Concomitant]
  5. ARCOXIA [Concomitant]
  6. SIMVASTATIN [Concomitant]

REACTIONS (6)
  - DISORIENTATION [None]
  - HYPERVENTILATION [None]
  - HYPOKALAEMIA [None]
  - LOSS OF CONSCIOUSNESS [None]
  - MALAISE [None]
  - NAUSEA [None]
